FAERS Safety Report 23578601 (Version 1)
Quarter: 2024Q1

REPORT INFORMATION
  Report Type: Spontaneous
  Country: US (occurrence: US)
  Receive Date: 20240229
  Receipt Date: 20240229
  Transmission Date: 20240409
  Serious: Yes (Hospitalization, Other)
  Sender: FDA-Public Use
  Company Number: US-NOVAST LABORATORIES INC.-2024NOV000199

PATIENT
  Age: 42 Year
  Sex: Male

DRUGS (7)
  1. QUETIAPINE [Suspect]
     Active Substance: QUETIAPINE
     Indication: Major depression
     Dosage: 100 MILLIGRAM, DAILY
     Route: 065
  2. QUETIAPINE [Suspect]
     Active Substance: QUETIAPINE
     Indication: Suicidal ideation
  3. QUETIAPINE [Suspect]
     Active Substance: QUETIAPINE
     Indication: Anxiety
  4. BUPROPION [Concomitant]
     Active Substance: BUPROPION
     Indication: Major depression
     Dosage: 300 MILLIGRAM, DAILY
     Route: 065
  5. ESCITALOPRAM [Concomitant]
     Active Substance: ESCITALOPRAM OXALATE
     Indication: Major depression
     Dosage: 10 MILLIGRAM, DAILY
     Route: 065
  6. ESCITALOPRAM [Concomitant]
     Active Substance: ESCITALOPRAM OXALATE
     Indication: Generalised anxiety disorder
  7. ALPRAZOLAM [Concomitant]
     Active Substance: ALPRAZOLAM
     Indication: Anxiety
     Dosage: 0.25 MILLIGRAM, UP TO THREE TIMES A DAY AS NEEDED
     Route: 065

REACTIONS (2)
  - Substance-induced psychotic disorder [Recovering/Resolving]
  - Product use in unapproved indication [Unknown]
